FAERS Safety Report 19581231 (Version 1)
Quarter: 2021Q3

REPORT INFORMATION
  Report Type: Spontaneous
  Country: US (occurrence: US)
  Receive Date: 20210719
  Receipt Date: 20210719
  Transmission Date: 20211014
  Serious: Yes (Hospitalization)
  Sender: FDA-Public Use
  Company Number: None

PATIENT
  Age: 58 Year
  Sex: Female
  Weight: 112 kg

DRUGS (2)
  1. DAPTOMYCIN. [Suspect]
     Active Substance: DAPTOMYCIN
     Indication: BACTERAEMIA
     Route: 042
     Dates: start: 20210624, end: 20210701
  2. CEFTAROLINE 600 MG BID [Concomitant]
     Dates: start: 20210624

REACTIONS (8)
  - Fatigue [None]
  - Headache [None]
  - Nausea [None]
  - Dizziness [None]
  - Rhabdomyolysis [None]
  - Asthenia [None]
  - Diarrhoea [None]
  - Vomiting [None]

NARRATIVE: CASE EVENT DATE: 20210701
